FAERS Safety Report 7468022-4 (Version None)
Quarter: 2011Q2

REPORT INFORMATION
  Report Type: 
  Country: None (occurrence: None)
  Receive Date: 20110509
  Receipt Date: 20110428
  Transmission Date: 20111010
  Serious: Yes (Other)
  Sender: FDA-Public Use
  Company Number: GR-BAXTER-2011BH012907

PATIENT
  Sex: Female

DRUGS (3)
  1. GAMMAGARD LIQUID [Suspect]
     Indication: OFF LABEL USE
     Route: 042
     Dates: start: 20110406, end: 20110406
  2. MEDROL [Concomitant]
     Indication: MYASTHENIC SYNDROME
     Route: 048
  3. GAMMAGARD LIQUID [Suspect]
     Indication: MYASTHENIC SYNDROME
     Route: 042
     Dates: start: 20110406, end: 20110406

REACTIONS (1)
  - HYPERSENSITIVITY [None]
